FAERS Safety Report 5318563-0 (Version None)
Quarter: 2007Q2

REPORT INFORMATION
  Report Type: 
  Country: None (occurrence: None)
  Receive Date: 20070501
  Receipt Date: 20070501
  Transmission Date: 20071010
  Serious: Yes (Hospitalization)
  Sender: FDA-Public Use
  Company Number: None

PATIENT
  Sex: Female
  Weight: 77.2 kg

DRUGS (2)
  1. TAXOTERE [Suspect]
     Dosage: 126 MG
  2. GEMCITABINE HCL [Suspect]
     Dosage: 2160 MG

REACTIONS (3)
  - DEEP VEIN THROMBOSIS [None]
  - DEHYDRATION [None]
  - DIARRHOEA [None]
